FAERS Safety Report 10152415 (Version 1)
Quarter: 2014Q2

REPORT INFORMATION
  Report Type: Spontaneous
  Country: US (occurrence: None)
  Receive Date: 20140505
  Receipt Date: 20140505
  Transmission Date: 20141212
  Serious: No
  Sender: FDA-Public Use
  Company Number: None

PATIENT
  Age: 8 Year
  Sex: Female

DRUGS (2)
  1. TACROLIMUS [Suspect]
     Indication: RENAL TRANSPLANT
     Dosage: APR AND MAY 2014
     Route: 048
     Dates: start: 201404, end: 201405
  2. SYRSPEND 3 F FAGRON [Suspect]

REACTIONS (1)
  - Immunosuppressant drug level increased [None]
